FAERS Safety Report 6701600-6 (Version None)
Quarter: 2010Q2

REPORT INFORMATION
  Report Type: 
  Country: None (occurrence: None)
  Receive Date: 20100429
  Receipt Date: 20100420
  Transmission Date: 20101027
  Serious: Yes (Other)
  Sender: FDA-Public Use
  Company Number: TR-ELI_LILLY_AND_COMPANY-TR201004006533

PATIENT
  Age: 21 Year
  Sex: Female

DRUGS (3)
  1. HUMULIN R [Suspect]
     Indication: GESTATIONAL DIABETES
     Dosage: 18 U, 3/D
     Route: 058
     Dates: start: 20091102
  2. HUMULIN N [Suspect]
     Indication: GESTATIONAL DIABETES
     Dosage: 18 U, DAILY (1/D)
     Route: 058
     Dates: start: 20091102
  3. VITAMINS [Concomitant]
     Dosage: UNK, UNKNOWN
     Route: 065
     Dates: end: 20100118

REACTIONS (2)
  - ABORTION SPONTANEOUS [None]
  - DRUG EXPOSURE DURING PREGNANCY [None]
